FAERS Safety Report 5418585-5 (Version None)
Quarter: 2007Q3

REPORT INFORMATION
  Report Type: 
  Country: None (occurrence: None)
  Receive Date: 20070817
  Receipt Date: 20070807
  Transmission Date: 20080115
  Serious: Yes (Death, Other)
  Sender: FDA-Public Use
  Company Number: US-PFIZER INC-2007055425

PATIENT
  Sex: Female

DRUGS (3)
  1. SUTENT [Suspect]
     Indication: MENINGIOMA
     Route: 048
     Dates: start: 20070607, end: 20070704
  2. DEXAMETHASONE 0.5MG TAB [Concomitant]
  3. CLONIDINE [Concomitant]

REACTIONS (18)
  - ABDOMINAL DISTENSION [None]
  - ASTHENIA [None]
  - CONSTIPATION [None]
  - DECUBITUS ULCER [None]
  - DISEASE PROGRESSION [None]
  - ECCHYMOSIS [None]
  - GASTROINTESTINAL HAEMORRHAGE [None]
  - IMPLANT SITE INFECTION [None]
  - MENINGIOMA [None]
  - MUCOSAL INFLAMMATION [None]
  - OEDEMA PERIPHERAL [None]
  - PAIN [None]
  - PERIPHERAL COLDNESS [None]
  - PETECHIAE [None]
  - PLATELET COUNT DECREASED [None]
  - RED BLOOD CELL COUNT DECREASED [None]
  - URINARY TRACT INFECTION [None]
  - WHITE BLOOD CELL COUNT DECREASED [None]
